FAERS Safety Report 8492563-4 (Version None)
Quarter: 2012Q3

REPORT INFORMATION
  Report Type: 
  Country: None (occurrence: None)
  Receive Date: 20120706
  Receipt Date: 20120629
  Transmission Date: 20120928
  Serious: No
  Sender: FDA-Public Use
  Company Number: US-B.I. PHARMACEUTICALS,INC./RIDGEFIELD-2012-BP-14877BP

PATIENT
  Sex: Male
  Weight: 125 kg

DRUGS (8)
  1. PRADAXA [Suspect]
     Indication: ATRIAL FIBRILLATION
     Dosage: 300 MG
     Route: 048
     Dates: start: 20120101
  2. CARDIZEM [Suspect]
     Indication: HEART RATE DECREASED
     Dosage: 120 MG
     Route: 048
     Dates: start: 20120101
  3. COQ10 [Concomitant]
     Indication: MYOPATHY
     Dosage: 200 MG
     Route: 048
     Dates: start: 20020101
  4. POTASSIUM [Concomitant]
     Indication: SUPPLEMENTATION THERAPY
     Dosage: 16 MEQ
     Route: 048
     Dates: start: 20000101
  5. CAPTROPRIL [Concomitant]
     Indication: ISCHAEMIC HEART DISEASE PROPHYLAXIS
     Dosage: 150 MG
     Route: 048
     Dates: start: 20000101
  6. AMIODARONE HCL [Concomitant]
     Indication: ATRIAL FIBRILLATION
     Dosage: 400 MG
     Route: 048
     Dates: start: 20000101
  7. LASIX [Concomitant]
     Indication: CARDIAC FAILURE CONGESTIVE
  8. LASIX [Concomitant]
     Indication: ATRIAL FIBRILLATION
     Dosage: 40 MG
     Route: 048
     Dates: start: 20000101

REACTIONS (2)
  - ATRIAL FIBRILLATION [None]
  - THROMBOSIS [None]
